FAERS Safety Report 6802877-9 (Version None)
Quarter: 2010Q2

REPORT INFORMATION
  Report Type: 
  Country: None (occurrence: None)
  Receive Date: 20100628
  Receipt Date: 20100616
  Transmission Date: 20101027
  Serious: Yes (Other)
  Sender: FDA-Public Use
  Company Number: US-JNJFOC-20100605279

PATIENT
  Age: 59 Year
  Sex: Male
  Weight: 67.13 kg

DRUGS (2)
  1. EXTRA STRENGTH TYLENOL PM [Suspect]
     Indication: INSOMNIA
     Dosage: 2 CAPLETS
     Route: 048
  2. EXTRA STRENGTH TYLENOL PM [Suspect]
     Dosage: 1 CAPLET
     Route: 048

REACTIONS (5)
  - BLADDER DILATATION [None]
  - BODY TEMPERATURE FLUCTUATION [None]
  - DYSURIA [None]
  - TREMOR [None]
  - URINARY RETENTION [None]
